FAERS Safety Report 16140892 (Version 1)
Quarter: 2019Q2

REPORT INFORMATION
  Report Type: Spontaneous
  Country: CH (occurrence: CH)
  Receive Date: 20190401
  Receipt Date: 20190401
  Transmission Date: 20190711
  Serious: Yes (Other)
  Sender: FDA-Public Use
  Company Number: CH-ELI_LILLY_AND_COMPANY-CH201903009450

PATIENT
  Age: 16 Year
  Sex: Female

DRUGS (1)
  1. FLUCTINE [Suspect]
     Active Substance: FLUOXETINE HYDROCHLORIDE
     Indication: DEPRESSION
     Dosage: 20 MG, UNK
     Route: 048
     Dates: start: 20181211, end: 20190307

REACTIONS (8)
  - Delusional perception [Recovering/Resolving]
  - Derealisation [Recovering/Resolving]
  - Off label use [Unknown]
  - Persecutory delusion [Recovering/Resolving]
  - Tension [Recovering/Resolving]
  - Hallucination, tactile [Recovering/Resolving]
  - Hallucination, visual [Recovering/Resolving]
  - Anxiety [Recovering/Resolving]

NARRATIVE: CASE EVENT DATE: 20190101
